FAERS Safety Report 8108551-3 (Version None)
Quarter: 2012Q1

REPORT INFORMATION
  Report Type: 
  Country: None (occurrence: None)
  Receive Date: 20120202
  Receipt Date: 20120131
  Transmission Date: 20120608
  Serious: Yes (Hospitalization)
  Sender: FDA-Public Use
  Company Number: PHHY2012DE002602

PATIENT
  Sex: Male

DRUGS (7)
  1. AMLODIPINE [Concomitant]
     Indication: HYPERTENSION
     Dosage: 10 MG, QD
     Route: 048
     Dates: start: 20080614
  2. ACE INHIBITOR NOS [Concomitant]
  3. BISOPROLOL [Concomitant]
     Indication: HYPERTENSION
     Dosage: 10 MG, QD
     Route: 048
     Dates: start: 20080412
  4. ALLOPURINOL [Concomitant]
     Indication: GOUT
     Dosage: 150 MG, QD
     Route: 048
     Dates: start: 20101015
  5. RASILEZ [Suspect]
     Indication: HYPERTENSION
     Dosage: 300 MG, QD
     Route: 048
     Dates: start: 20100805, end: 20120117
  6. METFORMIN HYDROCHLORIDE [Suspect]
     Indication: DIABETES MELLITUS
     Dosage: 1 DF (1000 MG METFORMIN/50 MG VILDAGLIPTINE)
     Route: 048
     Dates: start: 20090129
  7. LISINOPRIL [Concomitant]
     Indication: HYPERTENSION
     Dosage: 10 MG, QD
     Route: 048
     Dates: start: 20050506

REACTIONS (1)
  - PANCREATITIS [None]
